FAERS Safety Report 13369186 (Version 2)
Quarter: 2017Q1

REPORT INFORMATION
  Report Type: Spontaneous
  Country: US (occurrence: US)
  Receive Date: 20170324
  Receipt Date: 20170331
  Transmission Date: 20170429
  Serious: No
  Sender: FDA-Public Use
  Company Number: US-HORIZON-PEN-0127-2017

PATIENT
  Age: 61 Year
  Sex: Male

DRUGS (1)
  1. PENNSAID [Suspect]
     Active Substance: DICLOFENAC SODIUM
     Indication: OSTEOARTHRITIS
     Dosage: 2 PUMPS TWICE DAILY

REACTIONS (2)
  - Dry skin [Not Recovered/Not Resolved]
  - Application site exfoliation [Not Recovered/Not Resolved]

NARRATIVE: CASE EVENT DATE: 2017
